FAERS Safety Report 6896324-9 (Version None)
Quarter: 2010Q3

REPORT INFORMATION
  Report Type: 
  Country: None (occurrence: None)
  Receive Date: 20100802
  Receipt Date: 20100723
  Transmission Date: 20110219
  Serious: Yes (Hospitalization)
  Sender: FDA-Public Use
  Company Number: JP-ABBOTT-10P-087-0653099-00

PATIENT
  Sex: Female
  Weight: 76 kg

DRUGS (11)
  1. HUMIRA [Suspect]
     Indication: RHEUMATOID ARTHRITIS
     Route: 058
     Dates: start: 20100511
  2. LOXOPROFEN SODIUM HYDRATE [Concomitant]
     Indication: RHEUMATOID ARTHRITIS
     Route: 048
  3. TEPRENONE [Concomitant]
     Indication: PROPHYLAXIS
     Route: 048
  4. TEPRENONE [Concomitant]
     Indication: DISEASE COMPLICATION
  5. PREDNISOLONE [Concomitant]
     Indication: RHEUMATOID ARTHRITIS
     Route: 048
  6. RABEPRAZOLE SODIUM [Concomitant]
     Indication: PROPHYLAXIS
     Route: 048
  7. RABEPRAZOLE SODIUM [Concomitant]
     Indication: DISEASE COMPLICATION
  8. FURSULTIAMINE [Concomitant]
     Indication: PRODUCT USED FOR UNKNOWN INDICATION
     Route: 048
  9. FELBINAC [Concomitant]
     Indication: RHEUMATOID ARTHRITIS
     Dosage: 1 SHEET/DAY
     Route: 062
  10. METHOTREXATE [Concomitant]
     Indication: PRODUCT USED FOR UNKNOWN INDICATION
  11. SODIUM HYALURONATE [Concomitant]
     Indication: EYE DISORDER
     Route: 047

REACTIONS (3)
  - ABDOMINAL PAIN [None]
  - DIARRHOEA [None]
  - PYREXIA [None]
